FAERS Safety Report 5633391-4 (Version None)
Quarter: 2008Q1

REPORT INFORMATION
  Report Type: 
  Country: None (occurrence: None)
  Receive Date: 20080221
  Receipt Date: 20070206
  Transmission Date: 20080703
  Serious: Yes (Hospitalization)
  Sender: FDA-Public Use
  Company Number: A0638794A

PATIENT
  Age: 68 Year
  Sex: Male

DRUGS (3)
  1. ZIAGEN [Suspect]
     Indication: HIV INFECTION
  2. TIPRANAVIR + RITONAVIR [Suspect]
     Indication: HIV INFECTION
     Route: 048
     Dates: start: 20051201
  3. SUSTIVA [Suspect]
     Indication: HIV INFECTION
     Route: 048

REACTIONS (3)
  - DIARRHOEA [None]
  - HEPATIC ENZYME INCREASED [None]
  - THROMBOCYTOPENIA [None]
